FAERS Safety Report 25796793 (Version 2)
Quarter: 2025Q4

REPORT INFORMATION
  Report Type: Spontaneous
  Country: US (occurrence: US)
  Receive Date: 20250912
  Receipt Date: 20251209
  Transmission Date: 20260118
  Serious: No
  Sender: ANI
  Company Number: US-ANIPHARMA-2025-US-020731

PATIENT
  Age: 56 Year
  Sex: Female

DRUGS (12)
  1. CORTICOTROPIN [Suspect]
     Active Substance: CORTICOTROPIN
     Indication: Multiple sclerosis relapse
     Dosage: 1 ML DAILY SQ X 20 DAYS / 80 UNITS DAILY
     Route: 058
     Dates: start: 20250402
  2. BIOTIN [Concomitant]
     Active Substance: BIOTIN
  3. HERBALS\TURMERIC [Concomitant]
     Active Substance: HERBALS\TURMERIC
  4. TEA [Concomitant]
     Active Substance: TEA LEAF
  5. TYSABRI [Concomitant]
     Active Substance: NATALIZUMAB
  6. AMPYRA [Concomitant]
     Active Substance: DALFAMPRIDINE
  7. BACLOFEN [Concomitant]
     Active Substance: BACLOFEN
  8. LINZESS [Concomitant]
     Active Substance: LINACLOTIDE
  9. VITAMIN D-3-5 [Concomitant]
  10. VITAMIN C [Concomitant]
     Active Substance: ASCORBIC ACID
  11. MAGNESIUM GLUCONATE [Concomitant]
     Active Substance: MAGNESIUM GLUCONATE
  12. FISH OIL [Concomitant]
     Active Substance: FISH OIL

REACTIONS (2)
  - Joint swelling [Unknown]
  - Gait inability [Recovered/Resolved]

NARRATIVE: CASE EVENT DATE: 20250401
